FAERS Safety Report 16117161 (Version 2)
Quarter: 2019Q4

REPORT INFORMATION
  Report Type: Spontaneous
  Country: US (occurrence: US)
  Receive Date: 20190326
  Receipt Date: 20191207
  Transmission Date: 20200122
  Serious: Yes (Life-Threatening, Hospitalization, Other)
  Sender: FDA-Public Use
  Company Number: US-AUROBINDO-AUR-APL-2019-014485

PATIENT
  Age: 47 Year
  Sex: Male

DRUGS (1)
  1. LAMOTRIGINE. [Suspect]
     Active Substance: LAMOTRIGINE
     Indication: EPILEPSY
     Dosage: UNK
     Route: 065

REACTIONS (9)
  - Rash [Recovered/Resolved]
  - Leukopenia [Unknown]
  - Thrombocytopenia [Recovering/Resolving]
  - Pyrexia [Recovered/Resolved]
  - Transaminases increased [Unknown]
  - Serum ferritin increased [Recovering/Resolving]
  - Splenomegaly [Unknown]
  - T-lymphocyte count increased [Unknown]
  - Haemophagocytic lymphohistiocytosis [Recovered/Resolved]
